FAERS Safety Report 8571970-5 (Version None)
Quarter: 2012Q3

REPORT INFORMATION
  Report Type: 
  Country: None (occurrence: None)
  Receive Date: 20120806
  Receipt Date: 20120726
  Transmission Date: 20120928
  Serious: Yes (Other)
  Sender: FDA-Public Use
  Company Number: US-SANOFI-AVENTIS-2012SA053619

PATIENT
  Age: 65 Year
  Sex: Male

DRUGS (2)
  1. DEXLANSOPRAZOLE [Suspect]
  2. PLAVIX [Suspect]

REACTIONS (2)
  - MYOCARDIAL INFARCTION [None]
  - THROMBOSIS [None]
